FAERS Safety Report 7247063-6 (Version None)
Quarter: 2011Q1

REPORT INFORMATION
  Report Type: 
  Country: None (occurrence: None)
  Receive Date: 20110127
  Receipt Date: 20110118
  Transmission Date: 20110831
  Serious: Yes (Other)
  Sender: FDA-Public Use
  Company Number: US-CEPHALON-2011000271

PATIENT
  Age: 7 Year
  Sex: Male

DRUGS (1)
  1. ACTIQ [Suspect]
     Route: 002

REACTIONS (1)
  - ACCIDENTAL DRUG INTAKE BY CHILD [None]
